FAERS Safety Report 20773439 (Version 1)
Quarter: 2022Q2

REPORT INFORMATION
  Report Type: Spontaneous
  Country: US (occurrence: None)
  Receive Date: 20220430
  Receipt Date: 20220430
  Transmission Date: 20220721
  Serious: Yes (Hospitalization)
  Sender: FDA-Public Use
  Company Number: None

PATIENT
  Age: 75 Year
  Sex: Female
  Weight: 51.7 kg

DRUGS (3)
  1. FLUOROURACIL [Suspect]
     Active Substance: FLUOROURACIL
     Dates: end: 20220413
  2. LEUCOVORIN CALCIUM [Suspect]
     Active Substance: LEUCOVORIN CALCIUM
     Dates: end: 20220411
  3. ELOXATIN [Suspect]
     Active Substance: OXALIPLATIN
     Dates: end: 20220411

REACTIONS (8)
  - Dyspnoea [None]
  - Oxygen saturation decreased [None]
  - Anxiety [None]
  - Cardiac disorder [None]
  - Troponin increased [None]
  - Hypokalaemia [None]
  - Blood magnesium decreased [None]
  - Acute myocardial infarction [None]

NARRATIVE: CASE EVENT DATE: 20220425
